FAERS Safety Report 18756821 (Version 1)
Quarter: 2021Q1

REPORT INFORMATION
  Report Type: Spontaneous
  Country: US (occurrence: US)
  Receive Date: 20210118
  Receipt Date: 20210118
  Transmission Date: 20210419
  Serious: No
  Sender: FDA-Public Use
  Company Number: None

PATIENT
  Age: 82 Year
  Sex: Male
  Weight: 69.75 kg

DRUGS (11)
  1. FINASTERIDE 5MG [Concomitant]
     Active Substance: FINASTERIDE
  2. ASPIRIN (LOW DOSE) [Concomitant]
  3. ATORVASTATIN 20MG [Concomitant]
     Active Substance: ATORVASTATIN
  4. MULTI VIT [Concomitant]
     Active Substance: VITAMINS
  5. DOXYCYCLINE HYC 100 MG TABS 14TABS. [Suspect]
     Active Substance: DOXYCYCLINE HYCLATE
     Indication: PAIN IN EXTREMITY
     Dosage: ?          QUANTITY:1 TABLET(S);?
     Route: 048
     Dates: start: 20210104, end: 20210107
  6. AMLODIPINE BESYLATE 5MG [Concomitant]
     Active Substance: AMLODIPINE BESYLATE
  7. PALMETTO 450MG [Concomitant]
  8. METOPROLOL 25MG [Concomitant]
     Active Substance: METOPROLOL
  9. CALCIUM W/D3 PILLS 600MG [Concomitant]
  10. OMEPRAZOLE DR 20MG [Concomitant]
  11. DOXAZOSIN TAB 8MG [Concomitant]

REACTIONS (6)
  - Headache [None]
  - Fatigue [None]
  - Constipation [None]
  - Abdominal pain upper [None]
  - Decreased appetite [None]
  - Nausea [None]

NARRATIVE: CASE EVENT DATE: 20210105
